FAERS Safety Report 8315824-8 (Version None)
Quarter: 2012Q2

REPORT INFORMATION
  Report Type: 
  Country: None (occurrence: None)
  Receive Date: 20120427
  Receipt Date: 20120418
  Transmission Date: 20120825
  Serious: Yes (Hospitalization)
  Sender: FDA-Public Use
  Company Number: US-BIOGENIDEC-2012BI002771

PATIENT
  Age: 46 Year
  Sex: Male

DRUGS (5)
  1. NEURONTIN [Concomitant]
     Indication: PRODUCT USED FOR UNKNOWN INDICATION
  2. TYSABRI [Suspect]
     Route: 042
     Dates: start: 20120111
  3. TYSABRI [Suspect]
     Indication: MULTIPLE SCLEROSIS
     Route: 042
     Dates: start: 20110727, end: 20110926
  4. VICODIN [Concomitant]
     Indication: PRODUCT USED FOR UNKNOWN INDICATION
  5. ULTRAM [Concomitant]
     Indication: PRODUCT USED FOR UNKNOWN INDICATION

REACTIONS (4)
  - BACK PAIN [None]
  - DEPRESSION [None]
  - MULTIPLE SCLEROSIS RELAPSE [None]
  - CENTRAL NERVOUS SYSTEM LESION [None]
